FAERS Safety Report 24726428 (Version 1)
Quarter: 2024Q4

REPORT INFORMATION
  Report Type: Spontaneous
  Country: US (occurrence: US)
  Receive Date: 20241212
  Receipt Date: 20241212
  Transmission Date: 20250114
  Serious: No
  Sender: Kenvue
  Company Number: US-KENVUE-20241104594

PATIENT
  Sex: Female

DRUGS (2)
  1. MENS ROGAINE UNSCENTED FORMULA [Suspect]
     Active Substance: MINOXIDIL
     Indication: Alopecia
     Dosage: HALF A CUP FULL ONCE A DAY
     Route: 061
  2. MENS ROGAINE UNSCENTED FORMULA [Suspect]
     Active Substance: MINOXIDIL
     Dosage: CAP FULL ONCE A DAY
     Route: 061
     Dates: start: 202410

REACTIONS (5)
  - Poor quality product administered [Unknown]
  - Product physical consistency issue [Unknown]
  - Product distribution issue [Unknown]
  - Product use issue [Unknown]
  - Intentional product misuse [Unknown]
